FAERS Safety Report 17287818 (Version 1)
Quarter: 2020Q1

REPORT INFORMATION
  Report Type: Spontaneous
  Country: US (occurrence: US)
  Receive Date: 20200120
  Receipt Date: 20200120
  Transmission Date: 20200409
  Serious: No
  Sender: FDA-Public Use
  Company Number: US-TEVA-2020-US-1168844

PATIENT
  Sex: Male

DRUGS (2)
  1. COPAXONE [Suspect]
     Active Substance: GLATIRAMER ACETATE
     Dosage: STRENGTH UNKNOWN
     Route: 065
  2. AJ2 [DEVICE] [Suspect]
     Active Substance: DEVICE
     Route: 065

REACTIONS (6)
  - Adverse event [Unknown]
  - Cognitive disorder [Unknown]
  - Dysgraphia [Unknown]
  - Device difficult to use [Unknown]
  - Device failure [Unknown]
  - Device issue [Unknown]
